FAERS Safety Report 5919513-6 (Version None)
Quarter: 2008Q3

REPORT INFORMATION
  Report Type: 
  Country: None (occurrence: None)
  Receive Date: 20080909
  Receipt Date: 20070827
  Transmission Date: 20090109
  Serious: Yes (Hospitalization, Other)
  Sender: FDA-Public Use
  Company Number: 163-20785-07050181

PATIENT
  Age: 73 Year
  Sex: Female

DRUGS (11)
  1. THALOMID [Suspect]
     Indication: GAMMOPATHY
     Dosage: 200 MG, 2 IN 1 D, ORAL
     Route: 048
     Dates: start: 20070410, end: 20070401
  2. CELEXA [Concomitant]
  3. DEXAMETHASONE TAB [Concomitant]
  4. LACTULOSE [Concomitant]
  5. TOPROL-XL [Concomitant]
  6. PROTONIX [Concomitant]
  7. RESTORIL [Concomitant]
  8. FOSAMAX [Concomitant]
  9. NORVASC [Concomitant]
  10. ASPIRIN [Concomitant]
  11. CALCIUM  + D (CALCIUM WITH VITAMIN D) [Concomitant]

REACTIONS (8)
  - ASTHENIA [None]
  - CEREBROVASCULAR ACCIDENT [None]
  - CONFUSIONAL STATE [None]
  - DYSPNOEA [None]
  - INFECTION [None]
  - PNEUMONIA [None]
  - TREMOR [None]
  - URINARY INCONTINENCE [None]
